FAERS Safety Report 10172853 (Version 2)
Quarter: 2014Q4

REPORT INFORMATION
  Report Type: Spontaneous
  Country: US (occurrence: None)
  Receive Date: 20140416
  Receipt Date: 20141010
  Transmission Date: 20150528
  Serious: No
  Sender: FDA-Public Use
  Company Number: 163-POMAL-13110495

PATIENT
  Age: 86 Year
  Sex: Female

DRUGS (2)
  1. DEXAMETHASONE (DEXAMETHASONE) (UNKNOWN) [Suspect]
     Active Substance: DEXAMETHASONE
     Indication: PRODUCT USED FOR UNKNOWN INDICATION
  2. POMALYST [Suspect]
     Active Substance: POMALIDOMIDE
     Indication: PLASMA CELL MYELOMA
     Dosage: 4 MG, 21 IN 28 D, PO
     Route: 048
     Dates: start: 20131022, end: 20131116

REACTIONS (6)
  - Asthenia [None]
  - Gait disturbance [None]
  - Fatigue [None]
  - Constipation [None]
  - Pruritus [None]
  - Insomnia [None]

NARRATIVE: CASE EVENT DATE: 20131022
